FAERS Safety Report 5837274-6 (Version None)
Quarter: 2008Q3

REPORT INFORMATION
  Report Type: 
  Country: None (occurrence: None)
  Receive Date: 20080807
  Receipt Date: 20080730
  Transmission Date: 20090109
  Serious: Yes (Other)
  Sender: FDA-Public Use
  Company Number: US-PFIZER INC-2008064284

PATIENT
  Sex: Female
  Weight: 56.818 kg

DRUGS (5)
  1. LYRICA [Suspect]
     Indication: TRIGEMINAL NEURALGIA
  2. XANAX [Concomitant]
  3. REMERON [Concomitant]
  4. NEXIUM [Concomitant]
  5. TENORMIN [Concomitant]

REACTIONS (2)
  - MEMORY IMPAIRMENT [None]
  - ROAD TRAFFIC ACCIDENT [None]
